FAERS Safety Report 9169355 (Version 7)
Quarter: 2015Q2

REPORT INFORMATION
  Report Type: Spontaneous
  Country: US (occurrence: US)
  Receive Date: 20130318
  Receipt Date: 20150603
  Transmission Date: 20150821
  Serious: Yes (Hospitalization, Disabling, Other)
  Sender: FDA-Public Use
  Company Number: US-009507513-1303USA007596

PATIENT
  Sex: Female
  Weight: 78.5 kg

DRUGS (4)
  1. FOSAMAX [Suspect]
     Active Substance: ALENDRONATE SODIUM
     Indication: OSTEOPENIA
  2. BONIVA [Suspect]
     Active Substance: IBANDRONATE SODIUM
     Indication: OSTEOPENIA
  3. FOSAMAX [Suspect]
     Active Substance: ALENDRONATE SODIUM
     Indication: OSTEOPOROSIS
     Dosage: 70 MG, QW
     Route: 048
     Dates: start: 2001, end: 2003
  4. BONIVA [Suspect]
     Active Substance: IBANDRONATE SODIUM
     Indication: OSTEOPOROSIS
     Dosage: 70 MG, UNK
     Route: 048
     Dates: start: 2004, end: 201011

REACTIONS (36)
  - Low turnover osteopathy [Unknown]
  - Skin abrasion [Unknown]
  - Depression [Recovering/Resolving]
  - Hepatitis B [Unknown]
  - Intramedullary rod insertion [Unknown]
  - Chest pain [Unknown]
  - Neck pain [Unknown]
  - Hypertension [Unknown]
  - Femur fracture [Recovering/Resolving]
  - Bursitis [Unknown]
  - Contusion [Unknown]
  - Tinnitus [Unknown]
  - Dysphonia [Unknown]
  - Gastrooesophageal reflux disease [Unknown]
  - Hearing impaired [Unknown]
  - Intramedullary rod insertion [Unknown]
  - Anaemia postoperative [Recovered/Resolved]
  - Femur fracture [Recovering/Resolving]
  - Paraesthesia [Unknown]
  - Hypoaesthesia [Unknown]
  - Spinal osteoarthritis [Unknown]
  - Back pain [Unknown]
  - Pain in extremity [Unknown]
  - Arthralgia [Unknown]
  - Nodule [Unknown]
  - Muscular weakness [Unknown]
  - Osteoarthritis [Unknown]
  - Supraventricular tachycardia [Unknown]
  - Lower limb fracture [Unknown]
  - Supraventricular tachycardia [Recovered/Resolved]
  - Anxiety [Not Recovered/Not Resolved]
  - Drug ineffective [Unknown]
  - Tachycardia [Recovered/Resolved]
  - Pain in extremity [Unknown]
  - Joint swelling [Unknown]
  - Fatigue [Recovering/Resolving]

NARRATIVE: CASE EVENT DATE: 2007
